FAERS Safety Report 17712584 (Version 3)
Quarter: 2020Q2

REPORT INFORMATION
  Report Type: Spontaneous
  Country: US (occurrence: US)
  Receive Date: 20200427
  Receipt Date: 20200628
  Transmission Date: 20200714
  Serious: Yes (Other)
  Sender: FDA-Public Use
  Company Number: US-PFIZER INC-2020165738

PATIENT
  Age: 90 Year
  Sex: Female
  Weight: 86.18 kg

DRUGS (1)
  1. XALATAN [Suspect]
     Active Substance: LATANOPROST
     Indication: GLAUCOMA
     Dosage: ONE DROP IN EACH EYE NIGHTLY
     Route: 047

REACTIONS (14)
  - Fatigue [Unknown]
  - Cerebrovascular accident [Unknown]
  - Impaired driving ability [Unknown]
  - Oral pain [Unknown]
  - Brain neoplasm [Unknown]
  - Viral infection [Unknown]
  - Gait disturbance [Unknown]
  - Respiratory tract infection viral [Unknown]
  - Hypoacusis [Unknown]
  - Fall [Unknown]
  - Balance disorder [Unknown]
  - Sinusitis [Unknown]
  - Seizure [Unknown]
  - Accidental underdose [Unknown]

NARRATIVE: CASE EVENT DATE: 202001
